FAERS Safety Report 5329686-4 (Version None)
Quarter: 2007Q2

REPORT INFORMATION
  Report Type: 
  Country: None (occurrence: None)
  Receive Date: 20070521
  Receipt Date: 20070516
  Transmission Date: 20071010
  Serious: Yes (Hospitalization)
  Sender: FDA-Public Use
  Company Number: FR-RB-006339-07

PATIENT
  Age: 34 Year
  Sex: Male

DRUGS (1)
  1. SUBUTEX [Suspect]
     Dosage: DOSAGE UNKNOWN
     Route: 042

REACTIONS (2)
  - NECROSIS [None]
  - SKIN ULCER [None]
